FAERS Safety Report 24324714 (Version 1)
Quarter: 2024Q3

REPORT INFORMATION
  Report Type: Spontaneous
  Country: DE (occurrence: DE)
  Receive Date: 20240916
  Receipt Date: 20240916
  Transmission Date: 20241017
  Serious: Yes (Hospitalization, Other)
  Sender: BRACCO
  Company Number: DE-BRACCO-2024DE05704

PATIENT
  Age: 52 Year
  Sex: Male

DRUGS (3)
  1. SULFUR HEXAFLUORIDE [Suspect]
     Active Substance: SULFUR HEXAFLUORIDE
     Indication: Ultrasound scan
     Dosage: 0.7 ML, SINGLE
     Route: 042
     Dates: start: 20240911, end: 20240911
  2. SULFUR HEXAFLUORIDE [Suspect]
     Active Substance: SULFUR HEXAFLUORIDE
     Indication: Ultrasound scan
     Dosage: 0.7 ML, SINGLE
     Route: 042
     Dates: start: 20240911, end: 20240911
  3. SULFUR HEXAFLUORIDE [Suspect]
     Active Substance: SULFUR HEXAFLUORIDE
     Indication: Ultrasound scan
     Dosage: 0.7 ML, SINGLE
     Route: 042
     Dates: start: 20240911, end: 20240911

REACTIONS (2)
  - Hemiplegia [Unknown]
  - Aphasia [Unknown]

NARRATIVE: CASE EVENT DATE: 20240911
